FAERS Safety Report 5375117-8 (Version None)
Quarter: 2007Q2

REPORT INFORMATION
  Report Type: 
  Country: None (occurrence: None)
  Receive Date: 20070629
  Receipt Date: 20060707
  Transmission Date: 20071010
  Serious: No
  Sender: FDA-Public Use
  Company Number: US-ASTRAZENECA-2006UW14105

PATIENT
  Age: 49 Year
  Sex: Female
  Weight: 72.6 kg

DRUGS (2)
  1. NOLVADEX [Suspect]
     Indication: BREAST CANCER
     Route: 048
     Dates: start: 20050901
  2. MULTIVITAMIN [Concomitant]

REACTIONS (1)
  - RASH FOLLICULAR [None]
